FAERS Safety Report 18783950 (Version 2)
Quarter: 2021Q1

REPORT INFORMATION
  Report Type: Spontaneous
  Country: GB (occurrence: GB)
  Receive Date: 20210125
  Receipt Date: 20210311
  Transmission Date: 20210419
  Serious: Yes (Other)
  Sender: FDA-Public Use
  Company Number: GB-MYLANLABS-2021M1003656

PATIENT
  Age: 82 Year
  Sex: Female

DRUGS (3)
  1. CARBIMAZOLE [Suspect]
     Active Substance: CARBIMAZOLE
     Indication: HYPERTHYROIDISM
     Dosage: 30 MILLIGRAM, QD
  2. AZARGA [Suspect]
     Active Substance: BRINZOLAMIDE\TIMOLOL MALEATE
     Indication: HYPERTHYROIDISM
     Dosage: 30 MILLIGRAM
     Route: 047
     Dates: start: 20200420, end: 20200701
  3. TIOPEX [Suspect]
     Active Substance: TIMOLOL MALEATE
     Indication: PRODUCT USED FOR UNKNOWN INDICATION
     Dosage: UNKNOWN
     Route: 047
     Dates: start: 20200701

REACTIONS (4)
  - Malaise [Unknown]
  - Hypothyroidism [Unknown]
  - Dizziness [Recovered/Resolved with Sequelae]
  - Kidney infection [Recovered/Resolved with Sequelae]

NARRATIVE: CASE EVENT DATE: 20201001
